FAERS Safety Report 22050782 (Version 1)
Quarter: 2023Q1

REPORT INFORMATION
  Report Type: Spontaneous
  Country: US (occurrence: None)
  Receive Date: 20230228
  Receipt Date: 20230228
  Transmission Date: 20230418
  Serious: Yes (Life-Threatening, Hospitalization, Disabling)
  Sender: FDA-Public Use
  Company Number: None

PATIENT
  Age: 75 Year
  Sex: Male
  Weight: 117.93 kg

DRUGS (3)
  1. LUMASON [Suspect]
     Active Substance: SULFUR HEXAFLUORIDE
     Indication: X-ray with contrast
     Route: 042
  2. C-PAP [Concomitant]
  3. VITAMIN D NOS [Concomitant]
     Active Substance: VITAMIN D NOS

REACTIONS (9)
  - Headache [None]
  - Dyspnoea [None]
  - Vision blurred [None]
  - Chest pain [None]
  - Swollen tongue [None]
  - Loss of consciousness [None]
  - Blood pressure decreased [None]
  - Communication disorder [None]
  - Swelling face [None]

NARRATIVE: CASE EVENT DATE: 20230202
